FAERS Safety Report 8394709-5 (Version None)
Quarter: 2012Q2

REPORT INFORMATION
  Report Type: 
  Country: None (occurrence: None)
  Receive Date: 20120530
  Receipt Date: 20120524
  Transmission Date: 20120825
  Serious: Yes (Other)
  Sender: FDA-Public Use
  Company Number: US-PFIZER INC-2012126348

PATIENT
  Sex: Female
  Weight: 90 kg

DRUGS (3)
  1. PREMPRO [Suspect]
     Indication: COLD SWEAT
  2. LISINOPRIL [Concomitant]
     Indication: HYPERTENSION
     Dosage: UNK
  3. PREMPRO [Suspect]
     Indication: HOT FLUSH
     Dosage: 0.3MG/1.5MG, 1X/DAY
     Route: 048
     Dates: start: 20100101

REACTIONS (1)
  - HERNIA [None]
